FAERS Safety Report 17158604 (Version 1)
Quarter: 2019Q4

REPORT INFORMATION
  Report Type: Spontaneous
  Country: US (occurrence: US)
  Receive Date: 20191122
  Receipt Date: 20191122
  Transmission Date: 20200122
  Serious: No
  Sender: FDA-Public Use
  Company Number: None

PATIENT
  Sex: Female

DRUGS (1)
  1. TALTZ [Suspect]
     Active Substance: IXEKIZUMAB
     Indication: RHEUMATOID ARTHRITIS
     Dosage: ?          OTHER FREQUENCY:2 PEN WEEK 0, THE1;?
     Route: 058
     Dates: start: 201911

REACTIONS (3)
  - Injection site warmth [None]
  - Injection site erythema [None]
  - Injection site pain [None]
